FAERS Safety Report 7573217-5 (Version None)
Quarter: 2011Q2

REPORT INFORMATION
  Report Type: 
  Country: None (occurrence: None)
  Receive Date: 20110627
  Receipt Date: 20110625
  Transmission Date: 20111010
  Serious: Yes (Other)
  Sender: FDA-Public Use
  Company Number: US-PFIZER INC-2011141329

PATIENT
  Sex: Male
  Weight: 45.351 kg

DRUGS (7)
  1. XANAX [Concomitant]
     Indication: ANXIETY
     Dosage: UNK
  2. XANAX [Concomitant]
     Indication: DYSPNOEA
  3. PREDNISONE [Concomitant]
     Indication: DYSPNOEA
     Dosage: UNK
  4. XANAX [Concomitant]
     Indication: HEART RATE ABNORMAL
  5. MIRTAZAPINE [Concomitant]
     Indication: SLEEP DISORDER
     Dosage: UNK
  6. CHANTIX [Suspect]
     Indication: SMOKING CESSATION THERAPY
     Dosage: 0.5 MG, DAILY
     Route: 048
     Dates: start: 20110601, end: 20110623
  7. CITALOPRAM [Concomitant]
     Indication: DEPRESSION
     Dosage: UNK

REACTIONS (4)
  - ABDOMINAL PAIN UPPER [None]
  - MUSCLE SPASMS [None]
  - CONVULSION [None]
  - MUSCLE FATIGUE [None]
